FAERS Safety Report 9194109 (Version 1)
Quarter: 2013Q1

REPORT INFORMATION
  Report Type: Other
  Country: IT (occurrence: IT)
  Receive Date: 20130327
  Receipt Date: 20130327
  Transmission Date: 20140127
  Serious: Yes (Hospitalization)
  Sender: FDA-Public Use
  Company Number: IT-WATSON-2013-05202

PATIENT
  Age: 64 Year
  Sex: Female

DRUGS (2)
  1. LORAZEPAM [Suspect]
     Indication: PRODUCT USED FOR UNKNOWN INDICATION
     Dosage: OVERDOSE WITH 6 DOSAGE FORM TOTAL
     Route: 065
     Dates: start: 20130124, end: 20130124
  2. ALPRAZOLAM [Suspect]
     Indication: PRODUCT USED FOR UNKNOWN INDICATION
     Dosage: OVERDOSE WITH 4 DOSAGE FORM TOTAL
     Route: 048
     Dates: start: 20130124, end: 20130124

REACTIONS (5)
  - Suicide attempt [Recovering/Resolving]
  - Drug abuse [Recovering/Resolving]
  - Intentional drug misuse [Recovering/Resolving]
  - Suicidal ideation [Unknown]
  - Overdose [Unknown]
